FAERS Safety Report 7861624-2 (Version None)
Quarter: 2011Q4

REPORT INFORMATION
  Report Type: 
  Country: None (occurrence: None)
  Receive Date: 20111027
  Receipt Date: 20111018
  Transmission Date: 20120403
  Serious: Yes (Other)
  Sender: FDA-Public Use
  Company Number: CA-ROCHE-1005605

PATIENT
  Sex: Female
  Weight: 73.094 kg

DRUGS (12)
  1. ACTEMRA [Suspect]
     Indication: RHEUMATOID ARTHRITIS
     Route: 042
     Dates: start: 20110315
  2. MINOCYCLINE HCL [Concomitant]
     Indication: UNEVALUABLE EVENT
  3. LORAZEPAM [Concomitant]
  4. PREDNISONE [Concomitant]
  5. ADVAIR DISKUS 100/50 [Concomitant]
     Route: 055
  6. ECHINACEA [Concomitant]
  7. ASCORBIC ACID [Concomitant]
  8. MORPHINE [Concomitant]
     Route: 048
  9. ZOPICLONE [Concomitant]
  10. VOLTAREN [Concomitant]
  11. VITAMIN B-12 [Concomitant]
     Route: 058
  12. SYNTHROID [Concomitant]

REACTIONS (1)
  - CHOLECYSTECTOMY [None]
